FAERS Safety Report 8534425-X (Version None)
Quarter: 2012Q3

REPORT INFORMATION
  Report Type: 
  Country: None (occurrence: None)
  Receive Date: 20120724
  Receipt Date: 20120719
  Transmission Date: 20120928
  Serious: Yes (Other)
  Sender: FDA-Public Use
  Company Number: PHHY2012MX062882

PATIENT
  Sex: Female

DRUGS (3)
  1. ZOLEDRONOC ACID [Suspect]
     Indication: OSTEOPOROSIS
     Dosage: 5 MG/100 ML ONCE A YEAR
     Route: 042
     Dates: start: 20080101
  2. NEXIUM [Concomitant]
     Indication: HIATUS HERNIA
     Dosage: 40 MG, QD
     Dates: start: 20110101
  3. EVISTA [Concomitant]
     Indication: PROPHYLAXIS
     Dosage: UNK
     Dates: start: 19920101

REACTIONS (1)
  - AORTIC CALCIFICATION [None]
